FAERS Safety Report 24282777 (Version 2)
Quarter: 2025Q2

REPORT INFORMATION
  Report Type: Spontaneous
  Country: US (occurrence: US)
  Receive Date: 20240904
  Receipt Date: 20250402
  Transmission Date: 20250717
  Serious: No
  Sender: PFIZER
  Company Number: US-PFIZER INC-PV202400114719

PATIENT
  Sex: Female

DRUGS (1)
  1. NURTEC ODT [Suspect]
     Active Substance: RIMEGEPANT SULFATE
     Indication: Migraine

REACTIONS (2)
  - Drug ineffective [Unknown]
  - Off label use [Unknown]
